FAERS Safety Report 18793210 (Version 2)
Quarter: 2021Q1

REPORT INFORMATION
  Report Type: Other
  Country: VN (occurrence: VN)
  Receive Date: 20210127
  Receipt Date: 20210129
  Transmission Date: 20210419
  Serious: Yes (Other)
  Sender: FDA-Public Use
  Company Number: VN-ROCHE-2757063

PATIENT

DRUGS (2)
  1. ANTITHYMOCYTE IMMUNOGLOBULIN [Concomitant]
     Active Substance: THYMOCYTE IMMUNE GLOBULIN NOS
     Indication: ACUTE GRAFT VERSUS HOST DISEASE
  2. MYCOPHENOLATE MOFETIL. [Suspect]
     Active Substance: MYCOPHENOLATE MOFETIL
     Indication: ACUTE GRAFT VERSUS HOST DISEASE
     Route: 065

REACTIONS (6)
  - Off label use [Unknown]
  - Pneumonia [Unknown]
  - Cellulitis [Unknown]
  - Cytomegalovirus infection reactivation [Unknown]
  - Fungal infection [Unknown]
  - Intentional product use issue [Unknown]
